FAERS Safety Report 17995145 (Version 5)
Quarter: 2022Q4

REPORT INFORMATION
  Report Type: Report from Study
  Country: US (occurrence: US)
  Receive Date: 20200708
  Receipt Date: 20221020
  Transmission Date: 20230112
  Serious: Yes (Hospitalization)
  Sender: FDA-Public Use
  Company Number: US-ABBVIE-20K-163-3473516-00

PATIENT
  Age: 85 Year
  Sex: Male
  Weight: 95.254 kg

DRUGS (3)
  1. SKYRIZI [Suspect]
     Active Substance: RISANKIZUMAB-RZAA
     Indication: Psoriasis
     Route: 058
     Dates: start: 20200221, end: 202110
  2. SKYRIZI [Suspect]
     Active Substance: RISANKIZUMAB-RZAA
     Route: 058
  3. MODERNA COVID-19 VACCINE [Concomitant]
     Active Substance: ELASOMERAN
     Indication: COVID-19 immunisation
     Dosage: 1 IN ONCE
     Route: 030

REACTIONS (9)
  - Hip arthroplasty [Unknown]
  - Joint dislocation [Recovered/Resolved]
  - Infection [Unknown]
  - Post procedural complication [Not Recovered/Not Resolved]
  - Immunodeficiency [Unknown]
  - Post procedural infection [Recovering/Resolving]
  - Gait disturbance [Unknown]
  - Medical device removal [Unknown]
  - Device dislocation [Unknown]

NARRATIVE: CASE EVENT DATE: 20200702
